FAERS Safety Report 5601107-3 (Version None)
Quarter: 2008Q1

REPORT INFORMATION
  Report Type: 
  Country: None (occurrence: None)
  Receive Date: 20080118
  Receipt Date: 20080114
  Transmission Date: 20080703
  Serious: Yes (Death)
  Sender: FDA-Public Use
  Company Number: GXKR2008DE00700

PATIENT
  Age: 53 Year
  Sex: Male
  Weight: 121.2 kg

DRUGS (3)
  1. RAMIPRIL HEXAL (NGX)(RAMIPRIL) TABLET, 5MG [Suspect]
     Indication: HYPERTENSION
     Dosage: 5 MG, QD
     Dates: start: 20080103
  2. AMLODIPIN HEXAL (NGX)(AMLODIPINE) TABLET, 10MG [Suspect]
     Indication: HYPERTENSION
     Dosage: 5 MG, QD, ORAL
     Route: 048
     Dates: start: 20071206
  3. RAMIPRIL COMP(HYDROCHLOROTHIAZIDE, RAMIPRIL) 5/25MG [Suspect]
     Dosage: 5/25 MG DAILY, ORAL
     Route: 048
     Dates: start: 20071122

REACTIONS (3)
  - CEREBROVASCULAR ACCIDENT [None]
  - SUDDEN CARDIAC DEATH [None]
  - SUDDEN DEATH [None]
